FAERS Safety Report 9961471 (Version 1)
Quarter: 2014Q1

REPORT INFORMATION
  Report Type: Spontaneous
  Country: US (occurrence: US)
  Receive Date: 20140305
  Receipt Date: 20140305
  Transmission Date: 20141002
  Serious: Yes (Hospitalization)
  Sender: FDA-Public Use
  Company Number: US-NOVOPROD-401577

PATIENT
  Age: 22 Year
  Sex: Male
  Weight: 61.68 kg

DRUGS (3)
  1. NOVOLOG [Suspect]
     Indication: TYPE 1 DIABETES MELLITUS
     Dosage: SCALE OF 1 UNIT TO EVERY 6 CARBOHYDRATES
     Route: 058
     Dates: start: 2004, end: 201402
  2. LANTUS [Concomitant]
     Indication: TYPE 1 DIABETES MELLITUS
     Dosage: 20 U, QD
     Route: 058
     Dates: start: 2004
  3. LANTUS [Concomitant]
     Dosage: UNK
     Dates: start: 201402, end: 201402

REACTIONS (3)
  - Kidney infection [Recovered/Resolved]
  - Diabetic ketoacidosis [Recovered/Resolved]
  - Blood glucose fluctuation [Recovered/Resolved]
